FAERS Safety Report 9378994 (Version 1)
Quarter: 2013Q2

REPORT INFORMATION
  Report Type: Spontaneous
  Country: MX (occurrence: None)
  Receive Date: 20130430
  Receipt Date: 20130430
  Transmission Date: 20140414
  Serious: Yes (Death, Disabling)
  Sender: FDA-Public Use
  Company Number: ENTC2012-0107

PATIENT
  Age: 83 Year
  Sex: Female

DRUGS (1)
  1. STALEVO [Suspect]
     Indication: PARKINSON^S DISEASE
     Dosage: 2 DF [ 2 TABLETS (50/12.5/200 MG) PER DAY
     Route: 048

REACTIONS (4)
  - Myocardial infarction [None]
  - Depression [None]
  - Product quality issue [None]
  - Muscle rigidity [None]
